FAERS Safety Report 5811685-7 (Version None)
Quarter: 2008Q3

REPORT INFORMATION
  Report Type: 
  Country: None (occurrence: None)
  Receive Date: 20080716
  Receipt Date: 20080710
  Transmission Date: 20090109
  Serious: Yes (Other)
  Sender: FDA-Public Use
  Company Number: A0609475A

PATIENT
  Age: 51 Year
  Sex: Male

DRUGS (1)
  1. PAXIL [Suspect]
     Indication: DRUG USE FOR UNKNOWN INDICATION
     Dates: start: 20050101

REACTIONS (3)
  - CRYING [None]
  - SUICIDAL IDEATION [None]
  - WEIGHT DECREASED [None]
